FAERS Safety Report 6784585-6 (Version None)
Quarter: 2010Q2

REPORT INFORMATION
  Report Type: 
  Country: None (occurrence: None)
  Receive Date: 20100622
  Receipt Date: 20100615
  Transmission Date: 20101027
  Serious: Yes (Other)
  Sender: FDA-Public Use
  Company Number: A0856378A

PATIENT
  Age: 55 Year
  Sex: Female

DRUGS (8)
  1. PROMACTA [Suspect]
     Indication: IDIOPATHIC THROMBOCYTOPENIC PURPURA
     Dosage: 50MG PER DAY
     Route: 048
     Dates: start: 20090806
  2. PREDNISONE [Concomitant]
     Indication: IDIOPATHIC THROMBOCYTOPENIC PURPURA
     Dosage: 10MG PER DAY
     Dates: start: 20090312
  3. FIORICET [Concomitant]
  4. PREVACID [Concomitant]
  5. PREVACID [Concomitant]
  6. LOMOTIL [Concomitant]
  7. VITAMIN D [Concomitant]
  8. VICODIN [Concomitant]

REACTIONS (2)
  - BONE MARROW RETICULIN FIBROSIS [None]
  - LIVER FUNCTION TEST ABNORMAL [None]
